FAERS Safety Report 18584092 (Version 1)
Quarter: 2020Q4

REPORT INFORMATION
  Report Type: Spontaneous
  Country: US (occurrence: US)
  Receive Date: 20201207
  Receipt Date: 20201207
  Transmission Date: 20210114
  Serious: No
  Sender: FDA-Public Use
  Company Number: US-BIOVITRUM-2020US6974

PATIENT
  Sex: Male

DRUGS (4)
  1. LASIX [Concomitant]
     Active Substance: FUROSEMIDE
  2. MULTIVITAMIN [Concomitant]
     Active Substance: VITAMINS
  3. EPINEPHRINE HCL [Concomitant]
     Active Substance: EPINEPHRINE
  4. SYNAGIS [Suspect]
     Active Substance: PALIVIZUMAB
     Indication: ANTIVIRAL PROPHYLAXIS
     Dosage: 100MG/1ML VL LIQUID
     Route: 030
     Dates: start: 2019

REACTIONS (1)
  - Cardiac disorder [Unknown]
